FAERS Safety Report 10086138 (Version 4)
Quarter: 2014Q4

REPORT INFORMATION
  Report Type: Spontaneous
  Country: DE (occurrence: None)
  Receive Date: 20140416
  Receipt Date: 20141027
  Transmission Date: 20150528
  Serious: Yes (Other)
  Sender: FDA-Public Use
  Company Number: 2014-19355

PATIENT
  Age: 72 Year
  Sex: Male

DRUGS (1)
  1. EYLEA [Suspect]
     Active Substance: AFLIBERCEPT
     Indication: AGE-RELATED MACULAR DEGENERATION
     Dosage: 2MG/0.05 MG, INTRAOCULAR
     Route: 031
     Dates: start: 20140218

REACTIONS (5)
  - Vitritis [None]
  - Ocular discomfort [None]
  - Iridocyclitis [None]
  - Uveitis [None]
  - Retinal haemorrhage [None]

NARRATIVE: CASE EVENT DATE: 20140221
